FAERS Safety Report 5034268-8 (Version None)
Quarter: 2006Q2

REPORT INFORMATION
  Report Type: 
  Country: None (occurrence: None)
  Receive Date: 20060621
  Receipt Date: 20060605
  Transmission Date: 20061013
  Serious: Yes (Death)
  Sender: FDA-Public Use
  Company Number: L06-USA-02351-01

PATIENT
  Age: 45 Year
  Sex: Male

DRUGS (4)
  1. CARBAMAZEPINE [Suspect]
  2. TEMOZOLOMIDE [Suspect]
     Indication: GLIOBLASTOMA MULTIFORME
  3. PHENYTOIN [Suspect]
  4. RADIOTHERAPY [Suspect]
     Indication: GLIOBLASTOMA MULTIFORME

REACTIONS (7)
  - APLASTIC ANAEMIA [None]
  - BONE MARROW FAILURE [None]
  - CYTOMEGALOVIRUS VIRAEMIA [None]
  - MALAISE [None]
  - MYELITIS TRANSVERSE [None]
  - PARAPLEGIA [None]
  - WEIGHT DECREASED [None]
